FAERS Safety Report 8254395-1 (Version None)
Quarter: 2012Q2

REPORT INFORMATION
  Report Type: 
  Country: None (occurrence: None)
  Receive Date: 20120402
  Receipt Date: 20120326
  Transmission Date: 20120825
  Serious: No
  Sender: FDA-Public Use
  Company Number: US-AMGEN-USASP2012019255

PATIENT
  Sex: Female

DRUGS (8)
  1. PRAVASTATIN [Concomitant]
  2. OMEPRAZOLE [Concomitant]
  3. ENBREL [Suspect]
     Indication: RHEUMATOID ARTHRITIS
     Dosage: 50 MG, QWK
     Dates: start: 20110301
  4. METHOTREXATE [Concomitant]
  5. FOLIC ACID [Concomitant]
  6. LISINOPRIL [Concomitant]
  7. NORVASC [Concomitant]
  8. PREDNISONE TAB [Concomitant]

REACTIONS (1)
  - SKIN DISCOLOURATION [None]
